FAERS Safety Report 13514836 (Version 1)
Quarter: 2017Q2

REPORT INFORMATION
  Report Type: Report from Study
  Country: HU (occurrence: HU)
  Receive Date: 20170504
  Receipt Date: 20170504
  Transmission Date: 20170830
  Serious: Yes (Life-Threatening, Hospitalization)
  Sender: FDA-Public Use
  Company Number: PHHO2017HU003810

PATIENT
  Age: 68 Year
  Sex: Female
  Weight: 63 kg

DRUGS (12)
  1. CONCOR [Concomitant]
     Active Substance: BISOPROLOL FUMARATE
     Indication: HYPERTENSION
     Dosage: 3 MG, BID
     Route: 048
     Dates: start: 20020101
  2. FOSTER [Concomitant]
     Active Substance: BECLOMETHASONE\FORMOTEROL
     Indication: ASTHMA
     Dosage: 31 DRP, BID
     Route: 006
     Dates: start: 20130101
  3. LORDESTIN [Concomitant]
     Indication: ASTHMA
     Dosage: 5 MG, QD
     Route: 048
     Dates: start: 20140101
  4. VITAMIN D3 [Concomitant]
     Active Substance: CHOLECALCIFEROL
     Indication: OSTEOPOROSIS
     Dosage: 1000 IU, QD
     Route: 048
     Dates: start: 20170101, end: 20170209
  5. LBH589 [Suspect]
     Active Substance: PANOBINOSTAT
     Indication: PLASMA CELL MYELOMA
     Dosage: 10 MG, TIW
     Route: 048
     Dates: start: 20170109, end: 20170208
  6. AFLAMIN [Concomitant]
     Indication: OSTEOARTHRITIS
     Dosage: 100 MG, QD
     Route: 048
     Dates: start: 20150101
  7. EONIC [Concomitant]
     Indication: ASTHMA
     Dosage: 10 MG, QD
     Route: 048
     Dates: start: 20150101
  8. DEXAMETHASONE. [Suspect]
     Active Substance: DEXAMETHASONE
     Indication: PLASMA CELL MYELOMA
     Dosage: 20 MG, OT
     Route: 048
     Dates: start: 20170109, end: 20170209
  9. BORTEZOMIB [Suspect]
     Active Substance: BORTEZOMIB
     Indication: PLASMA CELL MYELOMA
     Dosage: 1 MG, BIW
     Route: 058
     Dates: start: 20170109, end: 20170209
  10. ADEXOR [Concomitant]
     Indication: ANGINA PECTORIS
     Dosage: 35 MG, BID
     Route: 048
     Dates: start: 20020101
  11. COVEREX AS [Concomitant]
     Active Substance: PERINDOPRIL ARGININE
     Indication: HYPERTENSION
     Dosage: 5 MG, QD
     Route: 048
     Dates: start: 20120101
  12. SYNCUMAR [Concomitant]
     Active Substance: ACENOCOUMAROL
     Indication: DEEP VEIN THROMBOSIS
     Dosage: 2 MG, QD
     Route: 048
     Dates: start: 20110401, end: 20170209

REACTIONS (1)
  - Pneumonia [Recovered/Resolved with Sequelae]

NARRATIVE: CASE EVENT DATE: 20170210
